FAERS Safety Report 8773361 (Version 2)
Quarter: 2012Q4

REPORT INFORMATION
  Report Type: 
  Country: US (occurrence: US)
  Receive Date: 20120907
  Receipt Date: 20120917
  Transmission Date: 20130627
  Serious: Yes (Life-Threatening, Hospitalization, Disabling)
  Sender: FDA-Public Use
  Company Number: US-BAYER-2012-092225

PATIENT
  Age: 31 Year
  Sex: Female

DRUGS (7)
  1. YAZ [Suspect]
  2. YASMIN [Suspect]
  3. OCELLA [Suspect]
  4. NAPROXEN [Concomitant]
     Dosage: 500 mg, UNK
     Route: 048
     Dates: start: 20101211
  5. DICLOFENAC SODIUM [Concomitant]
     Dosage: 50 mg, UNK
     Route: 048
     Dates: start: 20101231
  6. TRAMADOL [Concomitant]
     Dosage: 50 mg, UNK
     Route: 048
     Dates: start: 20110112
  7. ASA [Concomitant]

REACTIONS (8)
  - Deep vein thrombosis [Recovered/Resolved]
  - Injury [Recovered/Resolved]
  - Pain [Recovered/Resolved]
  - General physical health deterioration [Recovered/Resolved]
  - Anxiety [None]
  - Anhedonia [None]
  - Emotional distress [None]
  - Pain [None]
